FAERS Safety Report 12480761 (Version 4)
Quarter: 2016Q3

REPORT INFORMATION
  Report Type: Spontaneous
  Country: US (occurrence: US)
  Receive Date: 20160620
  Receipt Date: 20160831
  Transmission Date: 20161109
  Serious: No
  Sender: FDA-Public Use
  Company Number: US-PFIZER INC-2016303275

PATIENT
  Age: 36 Year
  Sex: Female
  Weight: 80 kg

DRUGS (16)
  1. CHOLECALCIFEROL [Concomitant]
     Active Substance: CHOLECALCIFEROL
     Dosage: 1000 UNK
  2. VITAMIN C [Concomitant]
     Active Substance: ASCORBIC ACID
     Dosage: 5000 MG, UNK
  3. TAURINE [Concomitant]
     Active Substance: TAURINE
     Dosage: UNK
  4. BLACK COHOSH /01456801/ [Concomitant]
     Active Substance: BLACK COHOSH
  5. CYTOMEL [Suspect]
     Active Substance: LIOTHYRONINE SODIUM
     Indication: BASEDOW^S DISEASE
     Dosage: 5 UG, 2X/DAY
     Route: 048
  6. LEVOXYL [Concomitant]
     Active Substance: LEVOTHYROXINE SODIUM
     Dosage: 100 UG, DAILY
  7. MAGNESIUM OXIDE. [Concomitant]
     Active Substance: MAGNESIUM OXIDE
     Dosage: UNK
  8. CALCIUM [Concomitant]
     Active Substance: CALCIUM
     Dosage: 500 MG, DAILY
  9. CYTOMEL [Suspect]
     Active Substance: LIOTHYRONINE SODIUM
     Indication: HYPOTHYROIDISM
  10. WHEAT GLUTEN [Suspect]
     Active Substance: WHEAT GLUTEN
     Dosage: UNK
  11. PANTOPRAZOLE [Concomitant]
     Active Substance: PANTOPRAZOLE SODIUM
     Indication: FLATULENCE
     Dosage: 40 MG, DAILY
     Dates: start: 20160201, end: 20160501
  12. COENZYME Q10 [Concomitant]
     Active Substance: UBIDECARENONE
     Dosage: UNK
  13. AMITIZA [Concomitant]
     Active Substance: LUBIPROSTONE
     Dosage: 8 MG, 2X/DAY
  14. LINZESS [Concomitant]
     Active Substance: LINACLOTIDE
     Dosage: 145, UNK
  15. CYTOMEL [Suspect]
     Active Substance: LIOTHYRONINE SODIUM
     Indication: AUTOIMMUNE THYROIDITIS
     Dosage: 10 UG, 2X/DAY
     Route: 048
     Dates: start: 20150227, end: 20160615
  16. LEVOTHYROXINE. [Concomitant]
     Active Substance: LEVOTHYROXINE
     Indication: AUTOIMMUNE THYROIDITIS
     Dosage: 100 UG, 1X/DAY
     Dates: end: 20160615

REACTIONS (15)
  - Inflammation [Not Recovered/Not Resolved]
  - Fluid retention [Not Recovered/Not Resolved]
  - Feeding disorder [Recovered/Resolved]
  - Abdominal distension [Not Recovered/Not Resolved]
  - Faecal volume increased [Recovered/Resolved]
  - Waist circumference increased [Not Recovered/Not Resolved]
  - Weight increased [Not Recovered/Not Resolved]
  - Joint swelling [Not Recovered/Not Resolved]
  - Product formulation issue [Unknown]
  - Arthralgia [Not Recovered/Not Resolved]
  - Anti-thyroid antibody positive [Not Recovered/Not Resolved]
  - Malaise [Not Recovered/Not Resolved]
  - Abdominal pain [Not Recovered/Not Resolved]
  - Gastrointestinal pain [Not Recovered/Not Resolved]
  - Peripheral swelling [Not Recovered/Not Resolved]

NARRATIVE: CASE EVENT DATE: 20151218
